FAERS Safety Report 5168805-X (Version None)
Quarter: 2006Q4

REPORT INFORMATION
  Report Type: 
  Country: None (occurrence: None)
  Receive Date: 20061211
  Receipt Date: 20061127
  Transmission Date: 20070319
  Serious: Yes (Hospitalization)
  Sender: FDA-Public Use
  Company Number: DEWYE653627NOV06

PATIENT
  Sex: Male

DRUGS (1)
  1. ENBREL [Suspect]
     Indication: ANKYLOSING SPONDYLITIS
     Dosage: ONE DOSE PER WEEK
     Route: 058
     Dates: start: 20060301, end: 20060701

REACTIONS (3)
  - ABSCESS [None]
  - ACUTE TONSILLITIS [None]
  - PHARYNGEAL OEDEMA [None]
